FAERS Safety Report 5267445-1 (Version None)
Quarter: 2007Q1

REPORT INFORMATION
  Report Type: 
  Country: None (occurrence: None)
  Receive Date: 20070316
  Receipt Date: 20070305
  Transmission Date: 20070707
  Serious: Yes (Hospitalization)
  Sender: FDA-Public Use
  Company Number: US-KINGPHARMUSA00001-K200700254

PATIENT

DRUGS (4)
  1. ALTACE [Suspect]
     Dosage: 10 MG, QD
     Route: 048
  2. ALDACTONE [Suspect]
     Indication: CARDIAC FAILURE
     Dosage: 150 MG, QD
     Route: 048
     Dates: start: 20050515, end: 20061013
  3. CORGARD [Concomitant]
     Dosage: 40 MG, UNK
     Route: 048
  4. ISOPTIN [Concomitant]
     Dosage: 80 MG, UNK
     Route: 048

REACTIONS (11)
  - ATRIOVENTRICULAR BLOCK [None]
  - BLOOD CREATININE INCREASED [None]
  - BLOOD SODIUM DECREASED [None]
  - BRADYCARDIA [None]
  - HYPERHIDROSIS [None]
  - HYPERKALAEMIA [None]
  - HYPOTENSION [None]
  - MALAISE [None]
  - NAUSEA [None]
  - TORSADE DE POINTES [None]
  - VERTIGO [None]
